FAERS Safety Report 8208602-1 (Version None)
Quarter: 2012Q1

REPORT INFORMATION
  Report Type: 
  Country: None (occurrence: None)
  Receive Date: 20120314
  Receipt Date: 20120305
  Transmission Date: 20120608
  Serious: Yes (Hospitalization)
  Sender: FDA-Public Use
  Company Number: US-GLAXOSMITHKLINE-B0787435A

PATIENT
  Age: 69 Year
  Sex: Female
  Weight: 104.5 kg

DRUGS (4)
  1. PROPAFENONE HCL [Suspect]
     Indication: PALPITATIONS
     Dosage: 225MG THREE TIMES PER DAY
     Route: 065
     Dates: start: 20110101
  2. DILTIAZEM HYDROCHLORIDE [Suspect]
     Indication: PALPITATIONS
     Dosage: 240MG PER DAY
     Route: 065
     Dates: start: 20110101
  3. FAMOTIDINE [Concomitant]
     Indication: GASTRIC DISORDER
     Dosage: 20MG TWICE PER DAY
  4. CELECOXIB [Suspect]
     Indication: ARTHRITIS
     Dosage: 200MG PER DAY
     Route: 048
     Dates: start: 20000101

REACTIONS (4)
  - CARDIAC DISORDER [None]
  - FEELING ABNORMAL [None]
  - HEART RATE INCREASED [None]
  - DYSPNOEA [None]
